FAERS Safety Report 6265026-4 (Version None)
Quarter: 2009Q3

REPORT INFORMATION
  Report Type: 
  Country: None (occurrence: None)
  Receive Date: 20090709
  Receipt Date: 20090709
  Transmission Date: 20100115
  Serious: Yes (Hospitalization)
  Sender: FDA-Public Use
  Company Number: None

PATIENT
  Age: 55 Year
  Sex: Male
  Weight: 101.7 kg

DRUGS (2)
  1. CETUXIMAB 350MG/M2 [Suspect]
     Dosage: 600MG/M2 WEEKLY IV
     Route: 042
     Dates: start: 20090526, end: 20090706
  2. CISPLATIN [Suspect]
     Dosage: 220MG/M2 IV X 2 DOSES
     Route: 042
     Dates: start: 20090526, end: 20090629

REACTIONS (2)
  - NAUSEA [None]
  - WEIGHT DECREASED [None]
